FAERS Safety Report 16219673 (Version 5)
Quarter: 2020Q1

REPORT INFORMATION
  Report Type: Report from Study
  Country: None (occurrence: US)
  Receive Date: 20190420
  Receipt Date: 20200203
  Transmission Date: 20200409
  Serious: Yes (Hospitalization, Other)
  Sender: FDA-Public Use
  Company Number: US-ABBVIE-19K-163-2703272-00

PATIENT
  Sex: Male
  Weight: 79.45 kg

DRUGS (2)
  1. HUMIRA [Suspect]
     Active Substance: ADALIMUMAB
     Indication: RHEUMATOID ARTHRITIS
     Dosage: FOUR TO FIVE YEARS AGO
     Route: 058
     Dates: start: 2015, end: 20190815
  2. HUMIRA [Suspect]
     Active Substance: ADALIMUMAB
     Route: 058
     Dates: start: 20191216

REACTIONS (2)
  - Foot deformity [Recovering/Resolving]
  - Post procedural swelling [Recovering/Resolving]

NARRATIVE: CASE EVENT DATE: 2019
